FAERS Safety Report 5675496-8 (Version None)
Quarter: 2008Q2

REPORT INFORMATION
  Report Type: 
  Country: None (occurrence: None)
  Receive Date: 20080311
  Receipt Date: 20080102
  Transmission Date: 20081010
  Serious: Yes (Other)
  Sender: FDA-Public Use
  Company Number: PHEH2008US00467

PATIENT
  Sex: Male

DRUGS (1)
  1. TRILEPTAL(OXCARBAZEPINE ) UNKNOWN [Suspect]
     Indication: EPILEPSY
     Dates: start: 20050925

REACTIONS (4)
  - BLOOD SODIUM DECREASED [None]
  - CONVULSION [None]
  - DIPLOPIA [None]
  - ROAD TRAFFIC ACCIDENT [None]
